FAERS Safety Report 8071057-4 (Version None)
Quarter: 2012Q1

REPORT INFORMATION
  Report Type: 
  Country: None (occurrence: None)
  Receive Date: 20120125
  Receipt Date: 20120123
  Transmission Date: 20120608
  Serious: No
  Sender: FDA-Public Use
  Company Number: US-TEVA-316657USA

PATIENT
  Sex: Female

DRUGS (2)
  1. PROAIR HFA [Suspect]
     Indication: PULMONARY CONGESTION
     Dosage: 180 MICROGRAM;
     Route: 055
     Dates: start: 20111129, end: 20111220
  2. ATENOLOL [Concomitant]
     Indication: CARDIAC DISORDER
     Dosage: 25 MILLIGRAM;
     Route: 048

REACTIONS (2)
  - GLOSSODYNIA [None]
  - TONGUE DISCOLOURATION [None]
